FAERS Safety Report 4613355-X (Version None)
Quarter: 2005Q1

REPORT INFORMATION
  Report Type: 
  Country: None (occurrence: None)
  Receive Date: 20050316
  Receipt Date: 20050303
  Transmission Date: 20050727
  Serious: Yes (Death)
  Sender: FDA-Public Use
  Company Number: 2005041040

PATIENT
  Age: 73 Year
  Sex: Male

DRUGS (2)
  1. ZITHROMAX [Suspect]
     Indication: PNEUMONIA
     Dosage: 500 MG (500 MG, 1 IN 1 D), INTRAVENOUS
     Route: 042
     Dates: start: 20050228, end: 20050303
  2. CEFUROXIME [Concomitant]

REACTIONS (2)
  - COUGH [None]
  - PYREXIA [None]
